FAERS Safety Report 21543947 (Version 2)
Quarter: 2023Q2

REPORT INFORMATION
  Report Type: Spontaneous
  Country: US (occurrence: US)
  Receive Date: 20221102
  Receipt Date: 20230427
  Transmission Date: 20230722
  Serious: No
  Sender: FDA-Public Use
  Company Number: US-MYOVANT SCIENCES GMBH-2022MYSCI0700327

PATIENT
  Sex: Male

DRUGS (5)
  1. ORGOVYX [Suspect]
     Active Substance: RELUGOLIX
     Indication: Prostate cancer
     Dosage: 360 MILLIGRAM, ONE TIME DOSE
     Route: 048
  2. ORGOVYX [Suspect]
     Active Substance: RELUGOLIX
     Dosage: 120 MILLIGRAM, QD
     Route: 048
  3. CENTRUM SILVER                     /02363801/ [Concomitant]
     Indication: Supplementation therapy
     Dosage: 1 DOSAGE FORM, QD
     Route: 065
  4. VITAMIN D3 [Concomitant]
     Active Substance: CHOLECALCIFEROL
     Indication: Supplementation therapy
     Dosage: 50 MILLIGRAM, QD
     Route: 065
  5. ZINC [Concomitant]
     Active Substance: ZINC
     Indication: Supplementation therapy
     Dosage: 25 MILLIGRAM, QD
     Route: 065

REACTIONS (3)
  - Hypotension [Unknown]
  - Hot flush [Not Recovered/Not Resolved]
  - Prostatic disorder [Unknown]
